FAERS Safety Report 6558483-7 (Version None)
Quarter: 2010Q1

REPORT INFORMATION
  Report Type: 
  Country: None (occurrence: None)
  Receive Date: 20100129
  Receipt Date: 20100122
  Transmission Date: 20100710
  Serious: Yes (Life-Threatening, Hospitalization)
  Sender: FDA-Public Use
  Company Number: PL-AMGEN-UK385903

PATIENT
  Sex: Female

DRUGS (4)
  1. ROMIPLOSTIM [Suspect]
     Indication: IDIOPATHIC THROMBOCYTOPENIC PURPURA
     Route: 058
     Dates: start: 20090622
  2. METHYLPREDNISOLONE [Concomitant]
     Route: 048
     Dates: start: 20100106, end: 20100112
  3. DEXAMETHASONE [Concomitant]
     Route: 042
     Dates: start: 20100113
  4. OMEPRAZOLE [Concomitant]
     Route: 048
     Dates: start: 20100113

REACTIONS (1)
  - IDIOPATHIC THROMBOCYTOPENIC PURPURA [None]
